FAERS Safety Report 6671281-9 (Version None)
Quarter: 2010Q2

REPORT INFORMATION
  Report Type: 
  Country: None (occurrence: None)
  Receive Date: 20100407
  Receipt Date: 20100330
  Transmission Date: 20101027
  Serious: Yes (Hospitalization)
  Sender: FDA-Public Use
  Company Number: US-ROCHE-694947

PATIENT
  Sex: Male

DRUGS (2)
  1. PEGINTERFERON ALFA-2A [Suspect]
     Indication: HEPATITIS C
     Dosage: FORM: PRE-FILLED SYRINGE, WEEK 2 OF TREATMENT
     Route: 065
     Dates: start: 20100323
  2. RIBAVIRIN [Suspect]
     Indication: HEPATITIS C
     Dosage: DIVIDED DOSES, WEEK 2 OF TREATMENT
     Route: 065
     Dates: start: 20100323

REACTIONS (2)
  - FATIGUE [None]
  - RENAL FAILURE [None]
